FAERS Safety Report 9701309 (Version 1)
Quarter: 2013Q4

REPORT INFORMATION
  Report Type: Spontaneous
  Country: US (occurrence: US)
  Receive Date: 20131121
  Receipt Date: 20131121
  Transmission Date: 20140711
  Serious: No
  Sender: FDA-Public Use
  Company Number: US-GILEAD-2008-0016393

PATIENT
  Age: 64 Year
  Sex: Female
  Weight: 86.18 kg

DRUGS (10)
  1. LETAIRIS [Suspect]
     Indication: PULMONARY HYPERTENSION
     Route: 048
  2. TIGAN [Concomitant]
     Route: 048
  3. MAXALT [Concomitant]
     Route: 048
  4. PRILOSEC [Concomitant]
     Route: 048
  5. COUMADIN [Concomitant]
     Route: 048
  6. PROVENTIL [Concomitant]
     Route: 048
  7. ALBUTEROL [Concomitant]
     Route: 048
  8. NASONEX [Concomitant]
     Route: 048
  9. ASTELIN NASA [Concomitant]
     Route: 048
  10. ADVAIR [Concomitant]
     Route: 048

REACTIONS (1)
  - Red blood cell count decreased [None]
